FAERS Safety Report 7422857-2 (Version None)
Quarter: 2011Q2

REPORT INFORMATION
  Report Type: 
  Country: None (occurrence: None)
  Receive Date: 20110419
  Receipt Date: 20110408
  Transmission Date: 20111010
  Serious: Yes (Other)
  Sender: FDA-Public Use
  Company Number: DE-JNJFOC-20110405829

PATIENT
  Sex: Female

DRUGS (3)
  1. LEVOFLOXACIN [Suspect]
     Indication: EAR INFECTION
     Route: 048
  2. LEVOFLOXACIN [Suspect]
     Indication: RHINITIS
     Route: 048
  3. LEVOFLOXACIN [Suspect]
     Indication: PHARYNGITIS
     Route: 048

REACTIONS (1)
  - EPIGLOTTIC OEDEMA [None]
